FAERS Safety Report 23458825 (Version 5)
Quarter: 2024Q2

REPORT INFORMATION
  Report Type: Report from Study
  Country: US (occurrence: US)
  Receive Date: 20240131
  Receipt Date: 20240617
  Transmission Date: 20240716
  Serious: Yes (Hospitalization, Other)
  Sender: FDA-Public Use
  Company Number: US-ABBVIE-5607371

PATIENT
  Age: 74 Year
  Sex: Male
  Weight: 65.77 kg

DRUGS (8)
  1. SKYRIZI [Suspect]
     Active Substance: RISANKIZUMAB-RZAA
     Indication: Psoriasis
     Dosage: END DATE: 2021
     Route: 058
     Dates: start: 20210311
  2. SKYRIZI [Suspect]
     Active Substance: RISANKIZUMAB-RZAA
     Dosage: FORM STRENGTH: 150 MG
     Route: 058
     Dates: start: 20211216
  3. LOSARTAN [Concomitant]
     Active Substance: LOSARTAN
     Indication: Hypertension
  4. LOVENOX [Concomitant]
     Active Substance: ENOXAPARIN SODIUM
     Indication: Pulmonary embolism
  5. AMLODIPINE [Concomitant]
     Active Substance: AMLODIPINE BESYLATE
     Indication: Product used for unknown indication
  6. TADALAFIL [Concomitant]
     Active Substance: TADALAFIL
     Indication: Benign prostatic hyperplasia
  7. ASPIRIN [Concomitant]
     Active Substance: ASPIRIN
     Indication: Blood viscosity decreased
     Dosage: FORM STRENGTH: 81MG
  8. ELIQUIS [Concomitant]
     Active Substance: APIXABAN
     Indication: Blood viscosity decreased

REACTIONS (4)
  - Gastrointestinal neuroendocrine carcinoma [Recovering/Resolving]
  - Weight decreased [Recovering/Resolving]
  - Renal cancer [Unknown]
  - Neoplasm malignant [Recovering/Resolving]

NARRATIVE: CASE EVENT DATE: 20231001
